FAERS Safety Report 12989838 (Version 1)
Quarter: 2016Q4

REPORT INFORMATION
  Report Type: Spontaneous
  Country: US (occurrence: US)
  Receive Date: 20161130
  Receipt Date: 20161130
  Transmission Date: 20170207
  Serious: Yes (Hospitalization)
  Sender: FDA-Public Use
  Company Number: None

PATIENT
  Age: 84 Year
  Sex: Male
  Weight: 93.5 kg

DRUGS (1)
  1. WARFARIN [Suspect]
     Active Substance: WARFARIN
     Indication: ATRIAL FIBRILLATION
     Dosage: 1.5 TAB; EVERY DAY; PO
     Route: 048
     Dates: start: 20140613, end: 20151121

REACTIONS (3)
  - Pulmonary mass [None]
  - Hepatic lesion [None]
  - Rectal haemorrhage [None]

NARRATIVE: CASE EVENT DATE: 20151121
